FAERS Safety Report 13106890 (Version 1)
Quarter: 2017Q1

REPORT INFORMATION
  Report Type: Spontaneous
  Country: US (occurrence: US)
  Receive Date: 20170111
  Receipt Date: 20170111
  Transmission Date: 20170428
  Serious: No
  Sender: FDA-Public Use
  Company Number: US-SIGMAPHARM LABORATORIES, LLC-2016SIG00064

PATIENT
  Sex: Female
  Weight: 61.68 kg

DRUGS (3)
  1. ^NATURAL SUPPLEMENTS^ [Concomitant]
  2. LEVOTHYROXINE. [Concomitant]
     Active Substance: LEVOTHYROXINE
     Indication: AUTOIMMUNE THYROIDITIS
     Dosage: 0.88 MG, 1X/DAY
     Dates: start: 2013
  3. LIOTHYRONINE SODIUM. [Suspect]
     Active Substance: LIOTHYRONINE SODIUM
     Indication: AUTOIMMUNE THYROIDITIS
     Dosage: 5 MCG, 2X/DAY
     Route: 048
     Dates: start: 201609, end: 20161103

REACTIONS (4)
  - Dyspnoea [Recovered/Resolved]
  - Appetite disorder [Recovered/Resolved]
  - Laboratory test abnormal [Recovered/Resolved]
  - Hypersensitivity [Recovered/Resolved]
